FAERS Safety Report 23431223 (Version 2)
Quarter: 2024Q1

REPORT INFORMATION
  Report Type: Spontaneous
  Country: US (occurrence: US)
  Receive Date: 20240123
  Receipt Date: 20240123
  Transmission Date: 20240409
  Serious: No
  Sender: FDA-Public Use
  Company Number: US-ALCON LABORATORIES-ALC2023US003705

PATIENT
  Age: 60 Year
  Sex: Female
  Weight: 97.07 kg

DRUGS (2)
  1. PROPARACAINE HYDROCHLORIDE [Suspect]
     Active Substance: PROPARACAINE HYDROCHLORIDE
     Indication: Product used for unknown indication
     Dosage: 1 DROP, (ONE SINGLE DOSE)
     Dates: start: 20230707, end: 20230707
  2. TROPICAMIDE [Suspect]
     Active Substance: TROPICAMIDE
     Indication: Product used for unknown indication
     Dosage: 1 DROP, (ONE SINGLE DOSE)
     Dates: start: 20230707, end: 20230707

REACTIONS (3)
  - Foreign body in eye [Not Recovered/Not Resolved]
  - Dry eye [Not Recovered/Not Resolved]
  - Lacrimation decreased [Not Recovered/Not Resolved]

NARRATIVE: CASE EVENT DATE: 20230707
